FAERS Safety Report 8473592-3 (Version None)
Quarter: 2012Q2

REPORT INFORMATION
  Report Type: 
  Country: None (occurrence: None)
  Receive Date: 20120628
  Receipt Date: 20110822
  Transmission Date: 20120825
  Serious: Yes (Other)
  Sender: FDA-Public Use
  Company Number: US-MYLANLABS-2011S1013277

PATIENT
  Age: 9 Year
  Sex: Male

DRUGS (11)
  1. XOPENEX HFA [Concomitant]
     Dosage: 1-2 PUFFS TID
     Route: 055
  2. CLOZAPINE [Suspect]
     Indication: IMPULSE-CONTROL DISORDER
     Route: 048
     Dates: start: 20110617, end: 20110621
  3. BENZTROPINE MESYLATE [Concomitant]
     Indication: DROOLING
     Dosage: UP TO TID PRN
  4. TRAZODONE HCL [Concomitant]
     Indication: INSOMNIA
     Dosage: 1/2 TO 2 TABLETS AT BEDTIME PRN
  5. CLOZAPINE [Suspect]
  6. PROPRANOLOL [Concomitant]
  7. NASONEX [Concomitant]
     Dosage: 1 SPRAY IN EACH NOSTRIL
     Route: 045
  8. CLOZAPINE [Suspect]
     Route: 048
     Dates: start: 20110624, end: 20110707
  9. FLOVENT HFA [Concomitant]
     Route: 055
  10. CLOZAPINE [Suspect]
     Route: 048
     Dates: start: 20110622, end: 20110623
  11. DEPAKOTE ER [Concomitant]

REACTIONS (2)
  - GRANULOCYTOPENIA [None]
  - NEUTROPHIL PERCENTAGE DECREASED [None]
